FAERS Safety Report 18254697 (Version 1)
Quarter: 2020Q3

REPORT INFORMATION
  Report Type: Spontaneous
  Country: GB (occurrence: GB)
  Receive Date: 20200910
  Receipt Date: 20200910
  Transmission Date: 20201103
  Serious: Yes (Disabling)
  Sender: FDA-Public Use
  Company Number: GB-MYLANLABS-2020M1076768

PATIENT
  Age: 62 Year
  Sex: Female
  Weight: 54.42 kg

DRUGS (2)
  1. BRINZOLAMIDE [Suspect]
     Active Substance: BRINZOLAMIDE
     Indication: GLAUCOMA
     Dosage: 20 MILLIGRAM, QD
     Route: 047
     Dates: start: 2018
  2. TRAVOPROST. [Suspect]
     Active Substance: TRAVOPROST
     Indication: GLAUCOMA
     Dosage: 40 MILLIGRAM, QD
     Route: 047
     Dates: start: 2018

REACTIONS (2)
  - Macular fibrosis [Not Recovered/Not Resolved]
  - Visual impairment [Unknown]

NARRATIVE: CASE EVENT DATE: 201910
